FAERS Safety Report 17039031 (Version 1)
Quarter: 2019Q4

REPORT INFORMATION
  Report Type: Spontaneous
  Country: US (occurrence: US)
  Receive Date: 20191115
  Receipt Date: 20191115
  Transmission Date: 20200122
  Serious: Yes (Other)
  Sender: FDA-Public Use
  Company Number: US-PFIZER INC-2019476404

PATIENT
  Sex: Female

DRUGS (1)
  1. CHAPSTICK MEDICATED [Suspect]
     Active Substance: CAMPHOR (SYNTHETIC)\MENTHOL\PETROLATUM\PHENOL
     Dosage: UNK

REACTIONS (1)
  - Neoplasm malignant [Unknown]
